FAERS Safety Report 7301724-9 (Version None)
Quarter: 2011Q1

REPORT INFORMATION
  Report Type: 
  Country: None (occurrence: None)
  Receive Date: 20110218
  Receipt Date: 20110207
  Transmission Date: 20110831
  Serious: Yes (Hospitalization)
  Sender: FDA-Public Use
  Company Number: US-ROCHE-718890

PATIENT
  Age: 79 Year
  Sex: Female

DRUGS (17)
  1. LECITHIN [Concomitant]
  2. CEFTRIAXONE [Concomitant]
  3. SOTALOL HCL [Interacting]
     Indication: ATRIAL FIBRILLATION
     Route: 065
  4. DOXYCYCLINE [Concomitant]
  5. CALCIUM [Concomitant]
  6. VANCOMYCIN [Concomitant]
  7. CEFEPIME [Concomitant]
  8. OSELTAMIVIR [Suspect]
     Indication: H1N1 INFLUENZA
     Route: 065
  9. ASPIRIN [Concomitant]
  10. WARFARIN [Concomitant]
  11. LISINOPRIL [Concomitant]
  12. FAMOTIDINE [Concomitant]
  13. ONDANSERTRON HCL [Concomitant]
     Dosage: RECEIVED SEVEN DOSES
     Route: 042
  14. WARFARIN [Concomitant]
  15. FUROSEMIDE [Concomitant]
  16. POTASSIUM CHLORIDE [Concomitant]
  17. GLUCOSAMINE [Concomitant]

REACTIONS (4)
  - ELECTROCARDIOGRAM QT PROLONGED [None]
  - DRUG INTERACTION [None]
  - TORSADE DE POINTES [None]
  - GASTROINTESTINAL HAEMORRHAGE [None]
